FAERS Safety Report 18581508 (Version 1)
Quarter: 2020Q4

REPORT INFORMATION
  Report Type: Spontaneous
  Country: US (occurrence: US)
  Receive Date: 20201204
  Receipt Date: 20201204
  Transmission Date: 20210114
  Serious: No
  Sender: FDA-Public Use
  Company Number: US-ASSERTIO THERAPEUTICS, INC.-US-2019EGA001690

PATIENT
  Sex: Female

DRUGS (1)
  1. ZORVOLEX [Suspect]
     Active Substance: DICLOFENAC
     Indication: ARTHRALGIA
     Dosage: UNK

REACTIONS (4)
  - Unevaluable event [Unknown]
  - Oral mucosal blistering [Unknown]
  - Oral mucosal eruption [Unknown]
  - Adverse drug reaction [Unknown]
